FAERS Safety Report 6570105-8 (Version None)
Quarter: 2010Q1

REPORT INFORMATION
  Report Type: 
  Country: None (occurrence: None)
  Receive Date: 20100202
  Receipt Date: 20100202
  Transmission Date: 20100710
  Serious: Yes (Hospitalization, Other)
  Sender: FDA-Public Use
  Company Number: None

PATIENT
  Age: 30 Year
  Sex: Male
  Weight: 102.0593 kg

DRUGS (1)
  1. LEVAQUIN [Suspect]
     Indication: SINUSITIS BACTERIAL
     Dosage: 750MG ONCE DAILY PO
     Route: 048
     Dates: start: 20060321, end: 20060324

REACTIONS (15)
  - ABASIA [None]
  - ANXIETY [None]
  - BURSITIS [None]
  - CROHN'S DISEASE [None]
  - INSOMNIA [None]
  - MICTURITION URGENCY [None]
  - MUSCLE CONTRACTIONS INVOLUNTARY [None]
  - NEUROPATHY PERIPHERAL [None]
  - PHOTOPHOBIA [None]
  - POLLAKIURIA [None]
  - SLEEP DISORDER [None]
  - SLEEP TERROR [None]
  - TENDONITIS [None]
  - TINNITUS [None]
  - VITREOUS FLOATERS [None]
